FAERS Safety Report 4335794-7 (Version None)
Quarter: 2004Q2

REPORT INFORMATION
  Report Type: 
  Country: None (occurrence: None)
  Receive Date: 20040406
  Receipt Date: 20040324
  Transmission Date: 20050107
  Serious: Yes (Hospitalization)
  Sender: FDA-Public Use
  Company Number: UK032493

PATIENT
  Age: 70 Year
  Sex: Female

DRUGS (11)
  1. NESPO [Suspect]
     Indication: DIALYSIS
     Dosage: WEEKLY, IV
     Route: 042
     Dates: start: 20020801, end: 20040311
  2. ERYTHROPOIETIN HUMAN [Suspect]
     Dosage: WEEKLY, SC
     Route: 058
     Dates: start: 19970101, end: 20011231
  3. EPOETIN BETA [Suspect]
     Dosage: 45000 U, WEEKLY, IV
     Route: 042
     Dates: start: 20020101, end: 20030121
  4. CARNITINE [Concomitant]
  5. IRON [Concomitant]
  6. CYANOCOBALAMIN [Concomitant]
  7. OMEPRAZOLE [Concomitant]
  8. COLECALCIFEROL [Concomitant]
  9. TRANEXAMIC ACID [Concomitant]
  10. TAMOXIFEN CITRATE [Concomitant]
  11. ALENDRONATE SODIUM [Concomitant]

REACTIONS (5)
  - DRUG EFFECT DECREASED [None]
  - HAEMODIALYSIS [None]
  - IRON DEFICIENCY [None]
  - MALNUTRITION [None]
  - MYELODYSPLASTIC SYNDROME [None]
